FAERS Safety Report 6499501-4 (Version None)
Quarter: 2009Q4

REPORT INFORMATION
  Report Type: 
  Country: None (occurrence: None)
  Receive Date: 20091215
  Receipt Date: 20091207
  Transmission Date: 20100525
  Serious: Yes (Other)
  Sender: FDA-Public Use
  Company Number: US-BAYER-200940055NA

PATIENT
  Sex: Female
  Weight: 127 kg

DRUGS (2)
  1. BETASERON [Suspect]
     Indication: MULTIPLE SCLEROSIS
     Route: 058
  2. ANTIDEPRESSANT [Concomitant]
     Indication: DEPRESSION
     Route: 065

REACTIONS (2)
  - MASTECTOMY [None]
  - UTERINE LEIOMYOMA [None]
